FAERS Safety Report 9859586 (Version 3)
Quarter: 2014Q1

REPORT INFORMATION
  Report Type: Spontaneous
  Country: DE (occurrence: DE)
  Receive Date: 20140131
  Receipt Date: 20140325
  Transmission Date: 20141002
  Serious: Yes (Hospitalization)
  Sender: FDA-Public Use
  Company Number: DE-TEVA-460019GER

PATIENT
  Age: 68 Year
  Sex: Male
  Weight: 85 kg

DRUGS (1)
  1. BICALUTAMID TEVA 150 MG FILMTABLETTEN [Suspect]
     Indication: PROSTATE CANCER
     Dosage: 150 MILLIGRAM DAILY;
     Route: 048
     Dates: start: 201311, end: 20140124

REACTIONS (7)
  - Blood iron decreased [Recovering/Resolving]
  - Anaemia [Recovering/Resolving]
  - Cardiovascular disorder [Recovering/Resolving]
  - Blood pressure diastolic decreased [Recovering/Resolving]
  - Pallor [Recovering/Resolving]
  - Haematochezia [Unknown]
  - Dyspnoea [Recovering/Resolving]
